FAERS Safety Report 4480605-2 (Version None)
Quarter: 2005Q1

REPORT INFORMATION
  Report Type: 
  Country: None (occurrence: None)
  Receive Date: 20041019
  Receipt Date: 20041008
  Transmission Date: 20050727
  Serious: Yes (Hospitalization)
  Sender: FDA-Public Use
  Company Number: S04-FRA-06714-01

PATIENT
  Age: 89 Year
  Sex: Female

DRUGS (4)
  1. MEMANTINE HCL [Suspect]
     Indication: DEMENTIA ALZHEIMER'S TYPE
     Dosage: 5 MG QD PO
     Route: 048
     Dates: start: 20040915, end: 20040923
  2. MEMANTINE HCL [Suspect]
     Indication: DEMENTIA ALZHEIMER'S TYPE
     Dosage: 5 MG QD PO
     Route: 048
     Dates: start: 20040925
  3. ZESTRIL [Concomitant]
     Indication: ESSENTIAL HYPERTENSION
  4. ARICEPT [Suspect]
     Indication: DEMENTIA ALZHEIMER'S TYPE
     Dosage: 10 MG QD PO
     Route: 048
     Dates: start: 20030315

REACTIONS (4)
  - DIFFICULTY IN WALKING [None]
  - EXTRAPYRAMIDAL DISORDER [None]
  - MALAISE [None]
  - TREMOR [None]
